FAERS Safety Report 22794062 (Version 6)
Quarter: 2024Q2

REPORT INFORMATION
  Report Type: Spontaneous
  Country: US (occurrence: US)
  Receive Date: 20230807
  Receipt Date: 20240524
  Transmission Date: 20240715
  Serious: No
  Sender: FDA-Public Use
  Company Number: US-PFIZER INC-202300247120

PATIENT
  Age: 73 Year
  Sex: Male
  Weight: 90.72 kg

DRUGS (3)
  1. SOMAVERT [Suspect]
     Active Substance: PEGVISOMANT
     Indication: Brain neoplasm
     Dosage: 20 MG, DAILY
  2. SOMAVERT [Suspect]
     Active Substance: PEGVISOMANT
     Dosage: ONE, SIX DAYS A WEEK
     Route: 058
  3. FINASTERIDE [Concomitant]
     Active Substance: FINASTERIDE
     Dosage: 5 MG
     Dates: start: 2019

REACTIONS (4)
  - Nasopharyngitis [Recovered/Resolved]
  - Off label use [Unknown]
  - Device dispensing error [Unknown]
  - Product dose omission issue [Unknown]

NARRATIVE: CASE EVENT DATE: 20230724
